APPROVED DRUG PRODUCT: METOLAZONE
Active Ingredient: METOLAZONE
Strength: 5MG
Dosage Form/Route: TABLET;ORAL
Application: A213251 | Product #002 | TE Code: AB
Applicant: ALEMBIC PHARMACEUTICALS LTD
Approved: Dec 2, 2020 | RLD: No | RS: No | Type: RX